FAERS Safety Report 23187805 (Version 1)
Quarter: 2023Q4

REPORT INFORMATION
  Report Type: Spontaneous
  Country: US (occurrence: US)
  Receive Date: 20231115
  Receipt Date: 20231115
  Transmission Date: 20240110
  Serious: No
  Sender: FDA-Public Use
  Company Number: US-NOVOPROD-1083103

PATIENT
  Sex: Female

DRUGS (1)
  1. NOVOLOG [Suspect]
     Active Substance: INSULIN ASPART
     Indication: Type 1 diabetes mellitus
     Dosage: 100 UNITS/DAY
     Route: 058

REACTIONS (4)
  - Malaise [Unknown]
  - Nausea [Unknown]
  - Blood glucose increased [Unknown]
  - Drug ineffective [Unknown]
